FAERS Safety Report 12655490 (Version 1)
Quarter: 2016Q3

REPORT INFORMATION
  Report Type: Spontaneous
  Country: US (occurrence: US)
  Receive Date: 20160816
  Receipt Date: 20160816
  Transmission Date: 20161109
  Serious: No
  Sender: FDA-Public Use
  Company Number: GXBR2016US000838

PATIENT
  Sex: Female

DRUGS (1)
  1. RANITIDINE HCL TABLETS (I) [Suspect]
     Active Substance: RANITIDINE HYDROCHLORIDE
     Indication: PRODUCT USED FOR UNKNOWN INDICATION
     Dosage: UNK DF, UNK
     Route: 048

REACTIONS (1)
  - Nausea [Unknown]
